FAERS Safety Report 4994319-3 (Version None)
Quarter: 2006Q1

REPORT INFORMATION
  Report Type: 
  Country: None (occurrence: None)
  Receive Date: 20060314
  Receipt Date: 20050901
  Transmission Date: 20060701
  Serious: Yes (Other)
  Sender: FDA-Public Use
  Company Number: 200512896BCC

PATIENT
  Age: 18 Year
  Sex: Female
  Weight: 52.1637 kg

DRUGS (2)
  1. ALEVE (CAPLET) [Suspect]
     Indication: GROWING PAINS
     Dosage: 220 MG, ONCE, ORAL
     Route: 048
     Dates: start: 20050715
  2. ALEVE (CAPLET) [Suspect]
     Indication: PAIN IN EXTREMITY
     Dosage: 220 MG, ONCE, ORAL
     Route: 048
     Dates: start: 20050715

REACTIONS (4)
  - ANGIONEUROTIC OEDEMA [None]
  - CHEST DISCOMFORT [None]
  - HEART RATE INCREASED [None]
  - THROAT TIGHTNESS [None]
